FAERS Safety Report 20986119 (Version 1)
Quarter: 2022Q2

REPORT INFORMATION
  Report Type: Spontaneous
  Country: JP (occurrence: JP)
  Receive Date: 20220621
  Receipt Date: 20220621
  Transmission Date: 20220721
  Serious: Yes (Hospitalization)
  Sender: FDA-Public Use
  Company Number: JP-COSETTEEA-CP2022JP000035

PATIENT
  Age: 76 Year
  Sex: Male

DRUGS (1)
  1. EFFIENT [Suspect]
     Active Substance: PRASUGREL HYDROCHLORIDE
     Indication: Angina pectoris
     Route: 048

REACTIONS (2)
  - Pulmonary pneumatocele [Recovering/Resolving]
  - Haemoptysis [Recovered/Resolved]
